FAERS Safety Report 5925811-2 (Version None)
Quarter: 2008Q3

REPORT INFORMATION
  Report Type: 
  Country: None (occurrence: None)
  Receive Date: 20080923
  Receipt Date: 20070914
  Transmission Date: 20090109
  Serious: Yes (Disabling, Other)
  Sender: FDA-Public Use
  Company Number: WAES 0707USA03026

PATIENT
  Sex: Male

DRUGS (2)
  1. VYTORIN [Suspect]
     Dosage: 10-10 MG/PO
     Route: 048
  2. ZOCOR [Suspect]
     Dosage: PO
     Route: 048

REACTIONS (1)
  - POLYMYALGIA RHEUMATICA [None]
